FAERS Safety Report 9778339 (Version 1)
Quarter: 2013Q4

REPORT INFORMATION
  Report Type: Spontaneous
  Country: US (occurrence: None)
  Receive Date: 20131220
  Receipt Date: 20131220
  Transmission Date: 20140711
  Serious: Yes (Other)
  Sender: FDA-Public Use
  Company Number: None

PATIENT
  Age: 44 Year
  Sex: Female
  Weight: 56.7 kg

DRUGS (1)
  1. LIDOCAINE HYDROCHLORIDE [Suspect]
     Indication: SCLEROTHERAPY
     Dosage: SEVERAL INJECTIONS (30+) 3 TREATMETNS IN VEIN
     Route: 042
     Dates: start: 20120301, end: 20120831

REACTIONS (8)
  - Product quality issue [None]
  - Dyspnoea [None]
  - Procedural pain [None]
  - Skin discolouration [None]
  - Limb discomfort [None]
  - Thrombosis [None]
  - Product contamination physical [None]
  - Impaired healing [None]
